FAERS Safety Report 4897760-2 (Version None)
Quarter: 2006Q1

REPORT INFORMATION
  Report Type: 
  Country: None (occurrence: None)
  Receive Date: 20060201
  Receipt Date: 20060120
  Transmission Date: 20060701
  Serious: Yes (Other)
  Sender: FDA-Public Use
  Company Number: 2006GB00084

PATIENT
  Age: 18 Year
  Sex: Male

DRUGS (5)
  1. QUETIAPINE [Suspect]
     Route: 048
     Dates: start: 20050817
  2. ZAPONEX [Suspect]
     Route: 048
     Dates: start: 20051024, end: 20051028
  3. OLANZAPINE [Suspect]
     Route: 048
  4. CITALOPRAM HYDROBROMIDE [Concomitant]
     Route: 065
  5. ZOPICLONE [Concomitant]
     Route: 065
     Dates: start: 20050817

REACTIONS (1)
  - NEUTROPENIA [None]
